FAERS Safety Report 13044980 (Version 1)
Quarter: 2016Q4

REPORT INFORMATION
  Report Type: Spontaneous
  Country: US (occurrence: US)
  Receive Date: 20161220
  Receipt Date: 20161220
  Transmission Date: 20170207
  Serious: No
  Sender: FDA-Public Use
  Company Number: US-BIOVITRUM-2015US0509

PATIENT
  Sex: Female

DRUGS (1)
  1. KINERET [Suspect]
     Active Substance: ANAKINRA
     Indication: AUTOIMMUNE DISORDER
     Dosage: 100 MG Q.I.D
     Route: 058

REACTIONS (2)
  - Injection site discomfort [Not Recovered/Not Resolved]
  - Off label use [Not Recovered/Not Resolved]
